FAERS Safety Report 19792865 (Version 1)
Quarter: 2021Q3

REPORT INFORMATION
  Report Type: Spontaneous
  Country: IN (occurrence: IN)
  Receive Date: 20210906
  Receipt Date: 20210906
  Transmission Date: 20211014
  Serious: Yes (Death)
  Sender: FDA-Public Use
  Company Number: IN-PFIZER INC-2019143457

PATIENT
  Age: 56 Year
  Sex: Female

DRUGS (1)
  1. PALBACE [Suspect]
     Active Substance: PALBOCICLIB
     Indication: BREAST CANCER METASTATIC
     Dosage: 125 MG, 1X/DAY
     Route: 048
     Dates: start: 20181212

REACTIONS (7)
  - Neoplasm progression [Fatal]
  - Off label use [Unknown]
  - Oral mucosal blistering [Recovered/Resolved]
  - Renal failure [Fatal]
  - White blood cell count decreased [Unknown]
  - Taste disorder [Unknown]
  - Tongue disorder [Unknown]
